FAERS Safety Report 7704147-3 (Version None)
Quarter: 2011Q3

REPORT INFORMATION
  Report Type: 
  Country: None (occurrence: None)
  Receive Date: 20110818
  Receipt Date: 20110811
  Transmission Date: 20111222
  Serious: Yes (Other)
  Sender: FDA-Public Use
  Company Number: MSTR-NO-1108S-0211

PATIENT
  Age: 67 Year
  Sex: Male
  Weight: 71 kg

DRUGS (3)
  1. METASTRON [Suspect]
     Indication: METASTATIC PAIN
     Dosage: 3.7 MBQ, SINGLE DOSE, INTRAVENOUS
     Route: 042
     Dates: start: 20090416, end: 20090416
  2. BICALUTAMIDE [Concomitant]
  3. DEXAMETHASONE [Concomitant]

REACTIONS (3)
  - NEOPLASM PROGRESSION [None]
  - ANAEMIA [None]
  - PROSTATE CANCER [None]
